FAERS Safety Report 13673530 (Version 1)
Quarter: 2017Q2

REPORT INFORMATION
  Report Type: Spontaneous
  Country: US (occurrence: US)
  Receive Date: 20170621
  Receipt Date: 20170621
  Transmission Date: 20170830
  Serious: No
  Sender: FDA-Public Use
  Company Number: GXBR2017US001168

PATIENT
  Sex: Female
  Weight: 81.63 kg

DRUGS (2)
  1. LATANOPROST. [Concomitant]
     Active Substance: LATANOPROST
     Dosage: UNK DF, UNK
  2. TIMOLOL GFS [Suspect]
     Active Substance: TIMOLOL MALEATE
     Indication: GLAUCOMA
     Dosage: 1 GTT, QD, EACH EYE
     Route: 047

REACTIONS (3)
  - Erythema [Recovered/Resolved]
  - Pruritus [Recovering/Resolving]
  - Erythema of eyelid [Recovered/Resolved]
